FAERS Safety Report 9857483 (Version 1)
Quarter: 2014Q1

REPORT INFORMATION
  Report Type: Spontaneous
  Country: NL (occurrence: NL)
  Receive Date: 20140131
  Receipt Date: 20140131
  Transmission Date: 20141002
  Serious: Yes (Death)
  Sender: FDA-Public Use
  Company Number: PHHY2014NL010773

PATIENT
  Sex: Female

DRUGS (2)
  1. LEPONEX / CLOZARIL (CLOZAPINE) [Suspect]
     Indication: MENTAL DISORDER
     Dates: start: 201201
  2. LEPONEX / CLOZARIL (CLOZAPINE) [Suspect]
     Indication: OFF LABEL USE

REACTIONS (2)
  - Euthanasia [Fatal]
  - Drug ineffective [Unknown]
